FAERS Safety Report 10275671 (Version 1)
Quarter: 2014Q3

REPORT INFORMATION
  Report Type: Spontaneous
  Country: US (occurrence: None)
  Receive Date: 20140701
  Receipt Date: 20140701
  Transmission Date: 20150326
  Serious: Yes (Hospitalization)
  Sender: FDA-Public Use
  Company Number: 14AE029

PATIENT
  Sex: Female

DRUGS (1)
  1. ACETAMINOPHEN. [Suspect]
     Active Substance: ACETAMINOPHEN
     Indication: ACCIDENTAL OVERDOSE
     Dosage: 7-8 TALETS AT ONCE

REACTIONS (2)
  - Failure of child resistant mechanism for pharmaceutical product [None]
  - Accidental overdose [None]
